FAERS Safety Report 21021819 (Version 2)
Quarter: 2022Q3

REPORT INFORMATION
  Report Type: Spontaneous
  Country: JP (occurrence: JP)
  Receive Date: 20220629
  Receipt Date: 20220703
  Transmission Date: 20221027
  Serious: Yes (Life-Threatening, Hospitalization, Other)
  Sender: FDA-Public Use
  Company Number: JP-ONO-2022JP017535

PATIENT
  Age: 69 Year

DRUGS (2)
  1. YERVOY [Suspect]
     Active Substance: IPILIMUMAB
     Indication: Malignant melanoma
     Dosage: UNK, Q3W
     Route: 041
  2. OPDIVO [Suspect]
     Active Substance: NIVOLUMAB
     Indication: Malignant melanoma
     Dosage: UNK, Q3W
     Route: 041

REACTIONS (6)
  - Immune-mediated enterocolitis [Unknown]
  - Adrenal insufficiency [Unknown]
  - Hypopituitarism [Unknown]
  - Hypokalaemia [Unknown]
  - Cardiac arrest [Unknown]
  - Immune-mediated hepatic disorder [Unknown]
